FAERS Safety Report 12882654 (Version 4)
Quarter: 2017Q1

REPORT INFORMATION
  Report Type: Spontaneous
  Country: US (occurrence: US)
  Receive Date: 20161025
  Receipt Date: 20170208
  Transmission Date: 20170428
  Serious: No
  Sender: FDA-Public Use
  Company Number: US-PFIZER INC-2016490023

PATIENT
  Age: 54 Year
  Sex: Female

DRUGS (4)
  1. XELJANZ [Suspect]
     Active Substance: TOFACITINIB CITRATE
     Indication: TYPE 2 DIABETES MELLITUS
     Dosage: 5 MG, UNK
  2. XELJANZ [Suspect]
     Active Substance: TOFACITINIB CITRATE
     Indication: HYPERLIPIDAEMIA
  3. XELJANZ [Suspect]
     Active Substance: TOFACITINIB CITRATE
     Indication: GASTROOESOPHAGEAL REFLUX DISEASE
  4. XELJANZ [Suspect]
     Active Substance: TOFACITINIB CITRATE
     Indication: RHEUMATOID ARTHRITIS

REACTIONS (6)
  - Fall [Unknown]
  - Product use issue [Unknown]
  - Back pain [Unknown]
  - Sinusitis [Unknown]
  - Intervertebral disc disorder [Unknown]
  - Constipation [Unknown]

NARRATIVE: CASE EVENT DATE: 20161013
